FAERS Safety Report 5207464-4 (Version None)
Quarter: 2007Q1

REPORT INFORMATION
  Report Type: 
  Country: None (occurrence: None)
  Receive Date: 20070112
  Receipt Date: 20070104
  Transmission Date: 20070707
  Serious: Yes (Hospitalization, Other)
  Sender: FDA-Public Use
  Company Number: CA-ABBOTT-06P-028-0338595-00

PATIENT
  Sex: Male
  Weight: 95 kg

DRUGS (4)
  1. BIAXIN [Suspect]
     Indication: DRUG USE FOR UNKNOWN INDICATION
     Route: 048
     Dates: start: 20060716, end: 20060717
  2. AMIODARONE HYDROCHLORIDE [Interacting]
     Indication: ATRIAL FIBRILLATION
     Route: 048
     Dates: start: 20060409, end: 20060718
  3. FENTANYL TRANSDERMAL SYSTEM [Interacting]
     Indication: POSTOPERATIVE ANALGESIA
     Route: 062
     Dates: start: 20060409
  4. FENTANYL TRANSDERMAL SYSTEM [Interacting]
     Route: 062

REACTIONS (7)
  - CONVULSION [None]
  - DRUG EFFECT INCREASED [None]
  - DRUG INTERACTION [None]
  - LOSS OF CONSCIOUSNESS [None]
  - MIOSIS [None]
  - RESPIRATORY RATE DECREASED [None]
  - TORSADE DE POINTES [None]
